FAERS Safety Report 9080739 (Version 1)
Quarter: 2013Q1

REPORT INFORMATION
  Report Type: Spontaneous
  Country: US (occurrence: US)
  Receive Date: 20130130
  Receipt Date: 20130130
  Transmission Date: 20140127
  Serious: No
  Sender: FDA-Public Use
  Company Number: US-ABBOTT-12P-163-0965111-00

PATIENT
  Age: 20 Year
  Sex: Male
  Weight: 68.1 kg

DRUGS (1)
  1. HUMIRA 40 MG/0.8 ML PEN [Suspect]
     Indication: CROHN^S DISEASE
     Dates: start: 201201

REACTIONS (4)
  - Poor quality drug administered [Recovered/Resolved]
  - Aphthous stomatitis [Not Recovered/Not Resolved]
  - Rectal discharge [Not Recovered/Not Resolved]
  - Rectal haemorrhage [Not Recovered/Not Resolved]
